FAERS Safety Report 19899740 (Version 5)
Quarter: 2021Q4

REPORT INFORMATION
  Report Type: Report from Study
  Country: US (occurrence: US)
  Receive Date: 20210930
  Receipt Date: 20211227
  Transmission Date: 20220304
  Serious: Yes (Other)
  Sender: FDA-Public Use
  Company Number: US-BIOGEN-2021BI01052806

PATIENT
  Age: 34 Year
  Sex: Female

DRUGS (3)
  1. TYSABRI [Suspect]
     Active Substance: NATALIZUMAB
     Indication: Multiple sclerosis
     Dosage: INFUSED FOR OVER 1 HOUR
     Route: 042
     Dates: start: 20210618
  2. TYSABRI [Suspect]
     Active Substance: NATALIZUMAB
     Route: 065
     Dates: start: 20210618
  3. covid 19 vaccine [Concomitant]
     Indication: COVID-19 prophylaxis
     Route: 065

REACTIONS (14)
  - Idiopathic intracranial hypertension [Recovered/Resolved]
  - Immune system disorder [Not Recovered/Not Resolved]
  - Blindness unilateral [Recovered/Resolved]
  - Localised infection [Not Recovered/Not Resolved]
  - Back pain [Recovered/Resolved]
  - Vision blurred [Recovered/Resolved]
  - Musculoskeletal pain [Recovered/Resolved]
  - Hypervolaemia [Unknown]
  - Dehydration [Unknown]
  - Stress [Unknown]
  - Syncope [Recovered/Resolved]
  - Upper respiratory tract infection [Unknown]
  - Headache [Recovered/Resolved]
  - Rash [Recovered/Resolved]

NARRATIVE: CASE EVENT DATE: 20210916
